FAERS Safety Report 5353005-0 (Version None)
Quarter: 2007Q2

REPORT INFORMATION
  Report Type: 
  Country: None (occurrence: None)
  Receive Date: 20070606
  Receipt Date: 20070518
  Transmission Date: 20071010
  Serious: No
  Sender: FDA-Public Use
  Company Number: TCI2007A00316

PATIENT
  Age: 80 Year
  Sex: Female

DRUGS (8)
  1. ACTOS [Suspect]
     Indication: DIABETES MELLITUS NON-INSULIN-DEPENDENT
     Dosage: SEE IMAGE
     Route: 048
     Dates: start: 20051111, end: 20051208
  2. ACTOS [Suspect]
     Indication: DIABETES MELLITUS NON-INSULIN-DEPENDENT
     Dosage: SEE IMAGE
     Route: 048
     Dates: start: 20051209, end: 20051224
  3. LIPIDIL [Suspect]
     Dosage: 100 MG (100 MG, 1 IN 1 D) PER ORAL
     Route: 048
     Dates: start: 20060322
  4. AMARYL [Suspect]
     Dosage: 3 MG (3 MG, 1 IN 1 D) PER ORAL
     Route: 048
     Dates: start: 20050301
  5. MICARDIS [Concomitant]
  6. BLADDERON (FLAVOXATE HYDROCHLORIDE) [Concomitant]
  7. NEOMALLERMIN TR (CHLORPHENAMINE MALEATE) [Concomitant]
  8. ANAFRANIL [Concomitant]

REACTIONS (9)
  - BRAIN NATRIURETIC PEPTIDE INCREASED [None]
  - CARDIAC FAILURE [None]
  - DIABETES MELLITUS INADEQUATE CONTROL [None]
  - DIABETIC NEPHROPATHY [None]
  - DYSPNOEA [None]
  - PLEURAL EFFUSION [None]
  - PULMONARY CONGESTION [None]
  - TACHYCARDIA [None]
  - WHEEZING [None]
